FAERS Safety Report 7028691 (Version 5)
Quarter: 2013Q1

REPORT INFORMATION
  Report Type: Report from Study
  Country: DE (occurrence: DE)
  Receive Date: 20090619
  Receipt Date: 20130329
  Transmission Date: 20140127
  Serious: Yes (Hospitalization)
  Sender: FDA-Public Use
  Company Number: PHHO2009DE07179

PATIENT
  Age: 21 Year
  Sex: Male
  Weight: 87 kg

DRUGS (6)
  1. EVEROLIMUS [Suspect]
     Indication: RENAL TRANSPLANT
     Dosage: 0.5 MG, BID
     Route: 048
     Dates: start: 20090201, end: 20090610
  2. MYFORTIC [Suspect]
     Indication: RENAL TRANSPLANT
     Dosage: OPEN-LABEL
     Route: 048
     Dates: start: 20090201, end: 20090610
  3. URBASON [Suspect]
     Indication: RENAL TRANSPLANT
     Dosage: 360 MG, BID
     Route: 048
     Dates: start: 20090201, end: 20090610
  4. VITAMIN D3 [Concomitant]
  5. IMMUNOSUPPRESSANTS [Concomitant]
  6. CALCIUM [Concomitant]

REACTIONS (4)
  - Respiratory failure [Not Recovered/Not Resolved]
  - Pneumonia [Recovered/Resolved]
  - Kidney transplant rejection [Not Recovered/Not Resolved]
  - Renal failure acute [Not Recovered/Not Resolved]
